FAERS Safety Report 4492263-1 (Version None)
Quarter: 2004Q4

REPORT INFORMATION
  Report Type: 
  Country: None (occurrence: None)
  Receive Date: 20041101
  Receipt Date: 20041014
  Transmission Date: 20050328
  Serious: Yes (Hospitalization)
  Sender: FDA-Public Use
  Company Number: A-CH2004-07768

PATIENT
  Age: 76 Year
  Sex: Female

DRUGS (14)
  1. TRACLEER [Suspect]
     Dosage: SEE IMAGE
     Route: 048
     Dates: start: 20020529, end: 20020625
  2. TRACLEER [Suspect]
     Dosage: SEE IMAGE
     Route: 048
     Dates: start: 20020626
  3. ANAESTHETICS, GENERAL () [Suspect]
  4. MORPHINE SULFATE [Suspect]
  5. OXYGEN (OXYGEN) [Concomitant]
  6. SINTROM [Concomitant]
  7. LASIX [Concomitant]
  8. CACIT (CALCIUM CARBONATE, CITRIC ACID) [Concomitant]
  9. REMEGEL (ALUMINIUM HYDROXIDE-MAGNESIUM CARBONATE GEL) [Concomitant]
  10. KAYEXALATE [Concomitant]
  11. UMULINE (INSULIN HUMAN ZINC SUSPENSION) [Concomitant]
  12. OMEPRAZOLE [Concomitant]
  13. IMOVANE (ZOPLICONE) [Concomitant]
  14. LEVOTHYROXINE SODIUM [Concomitant]

REACTIONS (14)
  - ABDOMINAL PAIN [None]
  - BLOOD PRESSURE SYSTOLIC DECREASED [None]
  - CONDITION AGGRAVATED [None]
  - FALL [None]
  - FEMORAL NECK FRACTURE [None]
  - HEPATIC FAILURE [None]
  - INTESTINAL ISCHAEMIA [None]
  - OVERDOSE [None]
  - OXYGEN SATURATION DECREASED [None]
  - PULMONARY HYPERTENSION [None]
  - RIGHT VENTRICULAR FAILURE [None]
  - SEPTIC SHOCK [None]
  - SOMNOLENCE [None]
  - STAPHYLOCOCCAL SEPSIS [None]
